FAERS Safety Report 13354248 (Version 1)
Quarter: 2017Q1

REPORT INFORMATION
  Report Type: Spontaneous
  Country: FR (occurrence: FR)
  Receive Date: 20170321
  Receipt Date: 20170321
  Transmission Date: 20170429
  Serious: Yes (Hospitalization)
  Sender: FDA-Public Use
  Company Number: FR-ROCHE-1909410

PATIENT
  Age: 59 Year
  Sex: Female

DRUGS (6)
  1. IMETH [Suspect]
     Active Substance: METHOTREXATE SODIUM
     Route: 048
     Dates: start: 20130906
  2. METOJECT [Suspect]
     Active Substance: METHOTREXATE SODIUM
     Indication: RHEUMATOID ARTHRITIS
     Dosage: 06/SEP/2013: STOP OF METOJECT
     Route: 058
     Dates: start: 20110719, end: 201308
  3. IMETH [Suspect]
     Active Substance: METHOTREXATE SODIUM
     Indication: RHEUMATOID ARTHRITIS
     Route: 048
     Dates: start: 20110204, end: 20110719
  4. ROACTEMRA [Suspect]
     Active Substance: TOCILIZUMAB
     Indication: RHEUMATOID ARTHRITIS
     Route: 042
     Dates: start: 20160125, end: 20161003
  5. IMETH [Suspect]
     Active Substance: METHOTREXATE SODIUM
     Route: 048
     Dates: start: 20160906
  6. IMETH [Suspect]
     Active Substance: METHOTREXATE SODIUM
     Route: 048
     Dates: start: 20160804

REACTIONS (1)
  - Metastatic uterine cancer [Not Recovered/Not Resolved]

NARRATIVE: CASE EVENT DATE: 20161116
